FAERS Safety Report 10610643 (Version 1)
Quarter: 2014Q4

REPORT INFORMATION
  Report Type: Spontaneous
  Country: SE (occurrence: SE)
  Receive Date: 20141126
  Receipt Date: 20141126
  Transmission Date: 20150529
  Serious: Yes (Other)
  Sender: FDA-Public Use
  Company Number: SE-SA-2014SA159359

PATIENT
  Age: 60 Year
  Sex: Female

DRUGS (1)
  1. OXALIPLATIN. [Suspect]
     Active Substance: OXALIPLATIN
     Route: 065

REACTIONS (4)
  - Oesophageal discomfort [Recovered/Resolved]
  - Muscle rigidity [Recovered/Resolved]
  - Paraesthesia [Recovered/Resolved]
  - Dysphonia [Recovered/Resolved]
